FAERS Safety Report 14385506 (Version 1)
Quarter: 2018Q1

REPORT INFORMATION
  Report Type: Spontaneous
  Country: US (occurrence: US)
  Receive Date: 20180115
  Receipt Date: 20180115
  Transmission Date: 20180509
  Serious: Yes (Other)
  Sender: FDA-Public Use
  Company Number: US-SA-2016SA233761

PATIENT
  Age: 47 Year
  Sex: Female
  Weight: 105.23 kg

DRUGS (4)
  1. SODIUM CHLORIDE. [Concomitant]
     Active Substance: SODIUM CHLORIDE
     Dosage: SODIUM CHLORIDE 0.9% 250ML
     Route: 065
  2. TAXOTERE [Suspect]
     Active Substance: DOCETAXEL
     Indication: INVASIVE DUCTAL BREAST CARCINOMA
     Dosage: TAXOTERE 75MG/M2=160MG IN?SODIUM CHLORIDE 0.9% 250ML CHEMO INFUSION FOR SIXTY (60) MINUTES
     Route: 051
     Dates: start: 20160211, end: 20160211
  3. TAXOTERE [Suspect]
     Active Substance: DOCETAXEL
     Indication: INVASIVE DUCTAL BREAST CARCINOMA
     Dosage: 75 MG/M2= 162.5 MG IN SODIUM CHLORIDE 0.9% 250 ML CHEMO INFUSION
     Route: 051
     Dates: start: 20151207, end: 20151207
  4. CYTOXAN [Concomitant]
     Active Substance: CYCLOPHOSPHAMIDE
     Dosage: CYTOXAN 600 MG/M2
     Route: 065

REACTIONS (5)
  - Emotional distress [Unknown]
  - Alopecia [Not Recovered/Not Resolved]
  - Impaired quality of life [Unknown]
  - Anxiety [Unknown]
  - Pain [Unknown]

NARRATIVE: CASE EVENT DATE: 20160101
